FAERS Safety Report 8581165-7 (Version None)
Quarter: 2012Q3

REPORT INFORMATION
  Report Type: 
  Country: None (occurrence: None)
  Receive Date: 20120809
  Receipt Date: 20120730
  Transmission Date: 20120928
  Serious: Yes (Other)
  Sender: FDA-Public Use
  Company Number: CA-JNJFOC-20120800523

PATIENT
  Sex: Female
  Weight: 99.6 kg

DRUGS (23)
  1. ACETAMINOPHEN [Concomitant]
     Dosage: 7000 IU
     Route: 048
     Dates: start: 20111004
  2. COSOPT [Concomitant]
     Dosage: 7000 IU
     Route: 047
     Dates: start: 20111004
  3. IRBESARTAN [Concomitant]
     Dosage: 7000 IU
     Route: 048
     Dates: start: 20111004
  4. MULTI-VITAMINS [Concomitant]
     Dosage: 7000 IU
     Route: 048
     Dates: start: 20111004
  5. CRESTOR [Concomitant]
     Dosage: 7000 IU
     Route: 048
     Dates: start: 20111004
  6. KLEAN PREP [Concomitant]
     Dosage: 7000 IU
     Route: 048
     Dates: start: 20111004
  7. LEVODOPA [Concomitant]
     Dosage: 7000 IU
     Route: 048
     Dates: start: 20120418
  8. IMURAN [Concomitant]
     Route: 065
  9. CITALOPRAM HYDROBROMIDE [Concomitant]
     Dosage: 7000 IU
     Route: 048
     Dates: start: 20111004
  10. REMICADE [Suspect]
     Indication: CROHN'S DISEASE
     Route: 042
     Dates: start: 20080612
  11. ALL OTHER THERAPEUTICS [Concomitant]
     Dosage: 7000 IU
     Route: 065
     Dates: start: 20111005
  12. DILTIAZEM [Concomitant]
     Dosage: 7000 IU
     Route: 048
     Dates: start: 20111004
  13. FUROSEMIDE [Concomitant]
     Dosage: 7000 IU
     Route: 048
     Dates: start: 20111004
  14. METAMUCIL-2 [Concomitant]
     Dosage: 7000 IU
     Route: 048
     Dates: start: 20111004
  15. AZATHIOPRINE SODIUM [Concomitant]
     Dosage: 7000 IU
     Route: 048
     Dates: start: 20111004
  16. METFORMIN HYDROCHLORIDE [Concomitant]
     Dosage: 7000 IU
     Route: 048
     Dates: start: 20111004
  17. VITAMIN D [Concomitant]
     Dosage: 7000 IU
     Route: 048
     Dates: start: 20111124
  18. FERROUS GLUCONATE [Concomitant]
     Dosage: 7000 IU
     Route: 048
     Dates: start: 20111004
  19. SENOKOT [Concomitant]
     Dosage: 7000 IU
     Route: 048
     Dates: start: 20111004
  20. OXYCET [Concomitant]
     Dosage: 7000 IU
     Route: 048
     Dates: start: 20111004
  21. LACTULOSE [Concomitant]
     Dosage: 7000 IU
     Route: 048
     Dates: start: 20111004
  22. NITROGLYCERIN [Concomitant]
     Dosage: 7000 IU
     Route: 060
     Dates: start: 20111004
  23. TRAZODONE HYDROCHLORIDE [Concomitant]
     Dosage: 7000 IU
     Route: 048
     Dates: start: 20111004

REACTIONS (2)
  - CONTUSION [None]
  - FALL [None]
